FAERS Safety Report 19159714 (Version 1)
Quarter: 2021Q2

REPORT INFORMATION
  Report Type: Spontaneous
  Country: US (occurrence: US)
  Receive Date: 20210420
  Receipt Date: 20210420
  Transmission Date: 20210717
  Serious: Yes (Other)
  Sender: FDA-Public Use
  Company Number: US-ASTRAZENECA-2021A303242

PATIENT

DRUGS (1)
  1. PULMICORT TURBUHALER [Suspect]
     Active Substance: BUDESONIDE
     Dosage: UNKNOWN
     Route: 055

REACTIONS (5)
  - Skin cancer [Unknown]
  - Impaired healing [Unknown]
  - Gastrointestinal disorder [Unknown]
  - Respiratory disorder [Unknown]
  - Blood glucose fluctuation [Unknown]
